FAERS Safety Report 20780681 (Version 1)
Quarter: 2022Q2

REPORT INFORMATION
  Report Type: Spontaneous
  Country: US (occurrence: US)
  Receive Date: 20220504
  Receipt Date: 20220504
  Transmission Date: 20220720
  Serious: No
  Sender: FDA-Public Use
  Company Number: US-SA-SAC20220427001460

PATIENT
  Sex: Male

DRUGS (4)
  1. PLAVIX [Suspect]
     Active Substance: CLOPIDOGREL BISULFATE
     Dosage: UNK
  2. ASPIRIN [Suspect]
     Active Substance: ASPIRIN
  3. METOPROLOL [Suspect]
     Active Substance: METOPROLOL
  4. CRESTOR [Concomitant]
     Active Substance: ROSUVASTATIN CALCIUM
     Dosage: UNK

REACTIONS (3)
  - Visual impairment [Unknown]
  - Vision blurred [Unknown]
  - Petechiae [Unknown]
